FAERS Safety Report 12242879 (Version 2)
Quarter: 2016Q2

REPORT INFORMATION
  Report Type: Spontaneous
  Country: US (occurrence: US)
  Receive Date: 20160406
  Receipt Date: 20160427
  Transmission Date: 20160815
  Serious: No
  Sender: FDA-Public Use
  Company Number: US-PFIZER INC-2016163121

PATIENT
  Age: 38 Year
  Sex: Female
  Weight: 62 kg

DRUGS (14)
  1. QUETIAPINE FUMARATE. [Concomitant]
     Active Substance: QUETIAPINE FUMARATE
     Indication: BIPOLAR DISORDER
     Dosage: 350 MG, DAILY [100 MG; 1/2 TABLET IN MORNING, 100 MG IN AFTERNOON AND 200 MG IN EVENING]
     Route: 048
  2. DICLOFENACO [Concomitant]
     Active Substance: DICLOFENAC
     Indication: ARTHRALGIA
     Dosage: 75 MG, 2X/DAY
     Route: 048
     Dates: start: 201602
  3. TRAZODONE HYDROCHLORIDE. [Concomitant]
     Active Substance: TRAZODONE HYDROCHLORIDE
     Indication: SLEEP DISORDER
     Dosage: 100 MG, 1X/DAY (AT NIGHT)
     Route: 048
  4. LYRICA [Suspect]
     Active Substance: PREGABALIN
     Indication: INTERVERTEBRAL DISC DEGENERATION
     Dosage: 50 MG, 2X/DAY
     Route: 048
  5. LYRICA [Suspect]
     Active Substance: PREGABALIN
     Dosage: 200 MG, DAILY [ A DAY AND SOMETIMES IS NOT TAKING ANY]
  6. BACLOFEN. [Concomitant]
     Active Substance: BACLOFEN
     Indication: MUSCLE RELAXANT THERAPY
     Dosage: 10 MG, 4X/DAY
     Route: 048
  7. BUSPIRONE [Concomitant]
     Active Substance: BUSPIRONE HYDROCHLORIDE
     Indication: ANXIETY
     Dosage: 10 MG, 3X/DAY
     Route: 048
  8. LYRICA [Suspect]
     Active Substance: PREGABALIN
     Indication: NEURALGIA
     Dosage: 400 MG, DAILY
     Route: 048
     Dates: start: 201512
  9. CLONAZEPAM. [Concomitant]
     Active Substance: CLONAZEPAM
     Indication: ANXIETY
     Dosage: 1 MG, 1X/DAY (AT NIGHT)
     Route: 048
     Dates: start: 201601
  10. XULANE [Concomitant]
     Active Substance: ETHINYL ESTRADIOL\NORELGESTROMIN
     Indication: CONTRACEPTION
     Dosage: UNK, CYCLIC [ONE PATCH WEEKLY AND ONE WEEK OFF]
  11. LYRICA [Suspect]
     Active Substance: PREGABALIN
     Indication: CERVICAL RADICULOPATHY
     Dosage: 100 MG, 3X/DAY
     Route: 048
  12. VALIUM [Concomitant]
     Active Substance: DIAZEPAM
     Indication: ANXIETY
     Dosage: 5 MG, 2X/DAY
     Dates: start: 201601
  13. LYRICA [Suspect]
     Active Substance: PREGABALIN
     Dosage: 300 MG, DAILY [A DAY]
  14. LEVOTHYROXINE. [Concomitant]
     Active Substance: LEVOTHYROXINE
     Indication: HYPOTHYROIDISM
     Dosage: 100 UG, DAILY
     Route: 048

REACTIONS (7)
  - Gait disturbance [Not Recovered/Not Resolved]
  - Speech disorder [Not Recovered/Not Resolved]
  - Hypoaesthesia [Not Recovered/Not Resolved]
  - Erythema [Not Recovered/Not Resolved]
  - Product use issue [Unknown]
  - Pain in extremity [Unknown]
  - Intentional product misuse [Unknown]

NARRATIVE: CASE EVENT DATE: 201511
